FAERS Safety Report 9553700 (Version 1)
Quarter: 2013Q3

REPORT INFORMATION
  Report Type: Spontaneous
  Country: US (occurrence: None)
  Receive Date: 20130924
  Receipt Date: 20130924
  Transmission Date: 20140515
  Serious: No
  Sender: FDA-Public Use
  Company Number: None

PATIENT
  Age: 46 Year
  Sex: Male
  Weight: 178.26 kg

DRUGS (2)
  1. BENADRYL [Suspect]
     Indication: INSOMNIA
  2. UNISOM [Suspect]

REACTIONS (3)
  - Cardiac failure [None]
  - Hypercapnia [None]
  - Drug interaction [None]
